FAERS Safety Report 21449396 (Version 1)
Quarter: 2022Q4

REPORT INFORMATION
  Report Type: Spontaneous
  Country: FR (occurrence: FR)
  Receive Date: 20221013
  Receipt Date: 20221013
  Transmission Date: 20230113
  Serious: Yes (Hospitalization)
  Sender: FDA-Public Use
  Company Number: None

PATIENT
  Age: 77 Year
  Sex: Female
  Weight: 66 kg

DRUGS (12)
  1. ESOMEPRAZOLE [Suspect]
     Active Substance: ESOMEPRAZOLE
     Indication: Gastric ulcer
     Dosage: 2 INTAKES PER DAY
     Dates: end: 20220421
  2. HYDROCHLOROTHIAZIDE [Suspect]
     Active Substance: HYDROCHLOROTHIAZIDE
     Indication: Hypertension
     Dosage: 12.5MG IN THE MORNING
  3. ENALAPRIL [Suspect]
     Active Substance: ENALAPRIL
     Indication: Hypertension
     Dosage: 20 MG IN THE MORNING
  4. TRILEPTAL [Suspect]
     Active Substance: OXCARBAZEPINE
     Indication: Trigeminal neuralgia
     Dosage: 1/2 MORNING AND EVENING, STRENGTH- 300 MG
     Dates: start: 202102
  5. TRAMADOL [Concomitant]
     Active Substance: TRAMADOL
  6. KARDEGIC [Concomitant]
     Active Substance: ASPIRIN DL-LYSINE
     Dosage: 75 MG, POWDER FOR ORAL SOLUTION IN SACHET-DOSE
  7. CHOLECALCIFEROL [Concomitant]
     Active Substance: CHOLECALCIFEROL
     Dosage: 50,000 IU, ORAL SOLUTION IN AMPOULE
  8. DONORMYL [Concomitant]
     Dosage: 15 MG, SCORED EFFERVESCENT TABLET
  9. DOMPERIDONE [Concomitant]
     Active Substance: DOMPERIDONE
  10. PREGABALIN [Concomitant]
     Active Substance: PREGABALIN
  11. BACLOFEN [Concomitant]
     Active Substance: BACLOFEN
  12. PHENYTOIN [Concomitant]
     Active Substance: PHENYTOIN

REACTIONS (1)
  - Hyponatraemia [Recovered/Resolved]
